FAERS Safety Report 5465774-X (Version None)
Quarter: 2007Q3

REPORT INFORMATION
  Report Type: 
  Country: None (occurrence: None)
  Receive Date: 20070924
  Receipt Date: 20070919
  Transmission Date: 20080115
  Serious: Yes (Death, Hospitalization)
  Sender: FDA-Public Use
  Company Number: B0486674A

PATIENT
  Age: 77 Year
  Sex: Female
  Weight: 50 kg

DRUGS (15)
  1. ARIXTRA [Suspect]
     Indication: THROMBOSIS PROPHYLAXIS
     Dosage: 2.5MG PER DAY
     Route: 058
     Dates: start: 20070901, end: 20070905
  2. LOXOPROFEN SODIUM [Suspect]
     Indication: DRUG USE FOR UNKNOWN INDICATION
     Dosage: 60MG TWICE PER DAY
     Route: 048
     Dates: start: 20070828, end: 20070903
  3. CONIEL [Concomitant]
     Indication: HYPERTENSION
     Dosage: 4MG PER DAY
     Route: 048
     Dates: end: 20070905
  4. MUCOSTA [Concomitant]
     Indication: GASTRITIS
     Dosage: 300MG PER DAY
     Route: 048
     Dates: start: 20070903, end: 20070905
  5. CANDESARTAN CILEXETIL [Concomitant]
     Indication: HYPERTENSION
     Dosage: 4MG PER DAY
     Route: 048
     Dates: end: 20070905
  6. VASOLAN [Concomitant]
     Dosage: 120MG PER DAY
     Route: 048
     Dates: end: 20070905
  7. DOGMATYL [Concomitant]
     Indication: AUTONOMIC NERVOUS SYSTEM IMBALANCE
     Dosage: 50MG PER DAY
     Route: 048
     Dates: end: 20070905
  8. SEPAZON [Concomitant]
     Indication: AUTONOMIC NERVOUS SYSTEM IMBALANCE
     Dosage: 1MG PER DAY
     Route: 048
     Dates: end: 20070905
  9. UNKNOWN MEDICATION [Concomitant]
     Dosage: 1G PER DAY
     Route: 048
     Dates: start: 20070828, end: 20070903
  10. ALTAT [Concomitant]
     Indication: GASTRITIS
     Dosage: 150MG PER DAY
     Route: 048
     Dates: start: 20070905, end: 20070905
  11. ALBUMIN (HUMAN) [Concomitant]
     Route: 042
     Dates: start: 20070905
  12. DOPAMINE HCL [Concomitant]
     Dates: start: 20070905
  13. TRANSFUSION [Concomitant]
     Dates: start: 20070905
  14. THROMBIN LOCAL SOLUTION [Concomitant]
     Dosage: 2BT PER DAY
     Dates: start: 20070905
  15. SODIUM ALGINATE [Concomitant]
     Dosage: 2BT PER DAY

REACTIONS (23)
  - ABDOMINAL PAIN [None]
  - ABDOMINAL PAIN UPPER [None]
  - ASPARTATE AMINOTRANSFERASE INCREASED [None]
  - BLOOD POTASSIUM DECREASED [None]
  - BLOOD PRESSURE DECREASED [None]
  - C-REACTIVE PROTEIN INCREASED [None]
  - COAGULATION FACTOR DECREASED [None]
  - DEPRESSED LEVEL OF CONSCIOUSNESS [None]
  - DIARRHOEA [None]
  - DUODENAL ULCER HAEMORRHAGE [None]
  - FAECES DISCOLOURED [None]
  - GASTRITIS [None]
  - HAEMATEMESIS [None]
  - HAEMATOCRIT DECREASED [None]
  - HAEMOGLOBIN DECREASED [None]
  - INTRA-ABDOMINAL HAEMORRHAGE [None]
  - MELAENA [None]
  - PLATELET COUNT DECREASED [None]
  - PROTEIN TOTAL DECREASED [None]
  - RED BLOOD CELL COUNT DECREASED [None]
  - SMALL INTESTINAL HAEMORRHAGE [None]
  - STRESS [None]
  - WHITE BLOOD CELL COUNT INCREASED [None]
